FAERS Safety Report 15490968 (Version 1)
Quarter: 2018Q4

REPORT INFORMATION
  Report Type: Spontaneous
  Country: IT (occurrence: IT)
  Receive Date: 20181012
  Receipt Date: 20181012
  Transmission Date: 20190205
  Serious: Yes (Other)
  Sender: FDA-Public Use
  Company Number: IT-009507513-1810ITA004712

PATIENT
  Age: 76 Year
  Sex: Male

DRUGS (1)
  1. KEYTRUDA [Suspect]
     Active Substance: PEMBROLIZUMAB
     Indication: LUNG ADENOCARCINOMA
     Dosage: 200MG, CYCLICAL
     Route: 042
     Dates: start: 20171205, end: 20180808

REACTIONS (1)
  - Epidermolysis bullosa [Recovering/Resolving]

NARRATIVE: CASE EVENT DATE: 20180822
